FAERS Safety Report 22000163 (Version 1)
Quarter: 2023Q1

REPORT INFORMATION
  Report Type: Spontaneous
  Country: CA (occurrence: CA)
  Receive Date: 20230216
  Receipt Date: 20230216
  Transmission Date: 20230417
  Serious: Yes (Other)
  Sender: FDA-Public Use
  Company Number: CA-PFIZER INC-202300063909

PATIENT
  Age: 28 Year
  Sex: Male

DRUGS (3)
  1. METRONIDAZOLE [Suspect]
     Active Substance: METRONIDAZOLE
     Indication: Crohn^s disease
     Dosage: UNK
  2. PREDNISONE [Concomitant]
     Active Substance: PREDNISONE
     Dosage: UNK
  3. PRO CIPROFLOXACIN [Concomitant]
     Dosage: UNK

REACTIONS (10)
  - Diarrhoea haemorrhagic [Unknown]
  - Perirectal abscess [Unknown]
  - Anal abscess [Unknown]
  - Weight decreased [Unknown]
  - Abdominal pain [Unknown]
  - Skin irritation [Recovered/Resolved]
  - Constipation [Unknown]
  - Pyrexia [Unknown]
  - Anal fistula [Unknown]
  - Off label use [Unknown]

NARRATIVE: CASE EVENT DATE: 20221001
